FAERS Safety Report 15022264 (Version 1)
Quarter: 2018Q2

REPORT INFORMATION
  Report Type: Spontaneous
  Country: US (occurrence: US)
  Receive Date: 20180601
  Receipt Date: 20180601
  Transmission Date: 20180711
  Serious: Yes (Hospitalization)
  Sender: FDA-Public Use
  Company Number: None

PATIENT
  Age: 19 Year
  Sex: Male
  Weight: 61.2 kg

DRUGS (5)
  1. CLOZAPINE. [Suspect]
     Active Substance: CLOZAPINE
     Indication: BIPOLAR DISORDER
     Dosage: AT BEDTIME
     Route: 048
     Dates: start: 20180302, end: 20180322
  2. LITHIUM 900 MG PO HS [Concomitant]
     Dates: start: 20180310, end: 20180426
  3. CLOZAPINE. [Suspect]
     Active Substance: CLOZAPINE
     Indication: BIPOLAR DISORDER
     Dosage: AT BEDTIME
     Route: 048
     Dates: start: 20180302, end: 20180322
  4. AMILORIDE 5 MG PO QDAY [Concomitant]
     Dates: start: 20180317, end: 20180426
  5. PERPHENAZINE 2 MG PO Q4 HOURS PRN PSYCHOSIS [Concomitant]
     Dates: start: 20180314, end: 20180322

REACTIONS (5)
  - Nausea [None]
  - Troponin increased [None]
  - Tachycardia [None]
  - Dizziness [None]
  - Myocarditis [None]

NARRATIVE: CASE EVENT DATE: 20180322
